FAERS Safety Report 13368700 (Version 1)
Quarter: 2017Q1

REPORT INFORMATION
  Report Type: Report from Study
  Country: DE (occurrence: DE)
  Receive Date: 20170324
  Receipt Date: 20170324
  Transmission Date: 20170429
  Serious: Yes (Hospitalization)
  Sender: FDA-Public Use
  Company Number: DE-TEVA-751490GER

PATIENT
  Age: 59 Year
  Sex: Male
  Weight: 68 kg

DRUGS (34)
  1. REKAWAN [Concomitant]
     Active Substance: POTASSIUM CHLORIDE
     Dates: start: 20150715, end: 20150715
  2. FUROSEMID [Concomitant]
     Active Substance: FUROSEMIDE
     Dates: start: 20150715, end: 20150715
  3. PIRITRAMID [Concomitant]
     Dates: start: 20150715, end: 20150715
  4. VINCRISTINE [Suspect]
     Active Substance: VINCRISTINE
     Indication: B-CELL LYMPHOMA
     Route: 042
     Dates: start: 20130528
  5. METAMIZOL [Concomitant]
     Active Substance: METAMIZOLE SODIUM
     Dates: start: 20150714, end: 20150718
  6. NACL 0.9% [Concomitant]
     Active Substance: SODIUM CHLORIDE
     Route: 048
     Dates: start: 20150713, end: 20150716
  7. ATRACURIUM [Concomitant]
     Active Substance: ATRACURIUM
     Dates: start: 20150714, end: 20150714
  8. CEFUROXIM [Concomitant]
     Active Substance: CEFUROXIME
     Dates: start: 20150714, end: 20150714
  9. TILIDIN [Concomitant]
     Active Substance: NALOXONE HYDROCHLORIDE\TILIDINE HYDROCHLORIDE
     Dates: start: 20150715, end: 20150715
  10. URAPIDIL [Concomitant]
     Active Substance: URAPIDIL
     Dates: start: 20150715, end: 20150715
  11. CLEXANE [Concomitant]
     Active Substance: ENOXAPARIN SODIUM
     Dates: start: 20150717, end: 20150719
  12. PROPOFOL. [Concomitant]
     Active Substance: PROPOFOL
     Dates: start: 20150714, end: 20150714
  13. DEXAMETHASONE. [Concomitant]
     Active Substance: DEXAMETHASONE
     Dates: start: 20150714, end: 20150714
  14. PARACETAMOL [Concomitant]
     Active Substance: ACETAMINOPHEN
     Indication: PREMEDICATION
     Dates: start: 20150715, end: 20150715
  15. VALORON [Concomitant]
     Active Substance: TILIDINE HYDROCHLORIDE
     Dates: start: 20150715, end: 20150715
  16. GLANDOMED [Concomitant]
     Dates: start: 20130806
  17. PANTOZOL [Concomitant]
     Active Substance: PANTOPRAZOLE SODIUM
     Dates: start: 20150713, end: 20150719
  18. SUFENTANIL [Concomitant]
     Active Substance: SUFENTANIL
     Dates: start: 20150714, end: 20150714
  19. RITUXIMAB [Suspect]
     Active Substance: RITUXIMAB
     Route: 042
     Dates: start: 20130528
  20. FENISTIL [Concomitant]
     Active Substance: DIMETHINDENE
     Indication: PREMEDICATION
  21. IBUPROFEN. [Concomitant]
     Active Substance: IBUPROFEN
     Dates: start: 201506, end: 20150714
  22. NOVALGIN [Concomitant]
     Active Substance: METAMIZOLE SODIUM
     Dates: start: 201506, end: 201507
  23. ACC [Concomitant]
     Active Substance: ACETYLCYSTEINE
     Route: 042
     Dates: start: 20150715, end: 20150715
  24. DESMOPRESSIN [Concomitant]
     Active Substance: DESMOPRESSIN
     Dates: start: 20150714, end: 20150714
  25. NOREPINEPHRINE [Concomitant]
     Active Substance: NOREPINEPHRINE\NOREPINEPHRINE BITARTRATE
     Dates: start: 20150714, end: 20150714
  26. RANITIDINE. [Concomitant]
     Active Substance: RANITIDINE
     Indication: PREMEDICATION
  27. NACL 0.9% [Concomitant]
     Active Substance: SODIUM CHLORIDE
     Route: 048
     Dates: start: 20150715, end: 20150719
  28. MCP [Concomitant]
     Active Substance: METOCLOPRAMIDE HYDROCHLORIDE
     Dates: start: 20150715, end: 20150715
  29. REMIFENTANIL [Concomitant]
     Active Substance: REMIFENTANIL
     Dates: start: 20150714, end: 20150714
  30. RINGER-ACETAT [Concomitant]
     Dates: start: 20150714, end: 20150714
  31. DOXORUBICIN [Suspect]
     Active Substance: DOXORUBICIN
     Indication: B-CELL LYMPHOMA
     Route: 042
     Dates: start: 20130529
  32. PREDNISONE. [Suspect]
     Active Substance: PREDNISONE
     Indication: B-CELL LYMPHOMA
     Dosage: DOSE OF LAST PREDNISONE: 100 MG. DATE OF MOST RECENT DOSE OF PREDNISONE: 21/SEP/2013 (1 IN 3 WK)
     Route: 048
     Dates: start: 20130529
  33. CYCLOPHOSPHAMIDE. [Suspect]
     Active Substance: CYCLOPHOSPHAMIDE
     Route: 042
     Dates: start: 20130529, end: 20150903
  34. MACROGOL [Concomitant]
     Active Substance: POLYETHYLENE GLYCOLS
     Dates: start: 20150714, end: 20150717

REACTIONS (1)
  - Neuroborreliosis [Recovered/Resolved]

NARRATIVE: CASE EVENT DATE: 20150806
